FAERS Safety Report 4435558-X (Version None)
Quarter: 2004Q3

REPORT INFORMATION
  Report Type: 
  Country: None (occurrence: None)
  Receive Date: 20040826
  Receipt Date: 20040812
  Transmission Date: 20050211
  Serious: Yes (Hospitalization)
  Sender: FDA-Public Use
  Company Number: 202778

PATIENT
  Age: 57 Year
  Sex: Female

DRUGS (5)
  1. AVONEX [Suspect]
     Indication: MULTIPLE SCLEROSIS RELAPSE
     Dosage: 30 MCG QW IM
     Route: 030
     Dates: start: 19990101, end: 20020101
  2. AVONEX [Suspect]
     Indication: MULTIPLE SCLEROSIS RELAPSE
     Dosage: 30 MCG QW IM
     Route: 030
     Dates: start: 20030101
  3. DI-ANTALVIC [Concomitant]
  4. LEVOTHYROXINE SODIUM [Concomitant]
  5. LEXOMIL [Concomitant]

REACTIONS (9)
  - CHILLS [None]
  - CONSTIPATION [None]
  - FATIGUE [None]
  - INFLUENZA LIKE ILLNESS [None]
  - INSOMNIA [None]
  - MULTIPLE SCLEROSIS RELAPSE [None]
  - MYALGIA [None]
  - POSTMENOPAUSAL HAEMORRHAGE [None]
  - TENDONITIS [None]
